FAERS Safety Report 6680755-6 (Version None)
Quarter: 2010Q2

REPORT INFORMATION
  Report Type: 
  Country: None (occurrence: None)
  Receive Date: 20100414
  Receipt Date: 20100406
  Transmission Date: 20101027
  Serious: Yes (Hospitalization)
  Sender: FDA-Public Use
  Company Number: FI-PERRIGO-10FI008509

PATIENT
  Age: 85 Year
  Sex: Female

DRUGS (2)
  1. SIMVASTATIN RX 10 MG 093 [Suspect]
     Indication: DRUG USE FOR UNKNOWN INDICATION
     Dosage: 10-40 MG DAILY
     Route: 048
  2. REUMACON [Suspect]
     Indication: RHEUMATOID ARTHRITIS
     Dosage: 100-200 MG DAILY
     Route: 048

REACTIONS (10)
  - ALANINE AMINOTRANSFERASE INCREASED [None]
  - BLOOD ALBUMIN DECREASED [None]
  - BLOOD CREATINE PHOSPHOKINASE INCREASED [None]
  - CARDIAC FAILURE [None]
  - DRUG INTERACTION [None]
  - GLOBULINS INCREASED [None]
  - MUSCULAR WEAKNESS [None]
  - MYALGIA [None]
  - RHABDOMYOLYSIS [None]
  - WEIGHT DECREASED [None]
